FAERS Safety Report 8149142-8 (Version None)
Quarter: 2012Q1

REPORT INFORMATION
  Report Type: 
  Country: None (occurrence: None)
  Receive Date: 20120218
  Receipt Date: 20110901
  Transmission Date: 20120608
  Serious: No
  Sender: FDA-Public Use
  Company Number: US-ALLERGAN-1111721US

PATIENT

DRUGS (1)
  1. BOTULINUM TOXIN TYPE A [Suspect]
     Indication: PRODUCT USED FOR UNKNOWN INDICATION
     Dosage: 100 UNITS, SINGLE
     Route: 030

REACTIONS (1)
  - LARYNGEAL OEDEMA [None]
